FAERS Safety Report 5175094-9 (Version None)
Quarter: 2006Q4

REPORT INFORMATION
  Report Type: 
  Country: None (occurrence: None)
  Receive Date: 20061214
  Receipt Date: 20060524
  Transmission Date: 20070319
  Serious: No
  Sender: FDA-Public Use
  Company Number: US-AMGEN-KDL180834

PATIENT
  Sex: Female

DRUGS (3)
  1. ENBREL [Suspect]
     Indication: RHEUMATOID ARTHRITIS
     Route: 058
     Dates: start: 20050321, end: 20060512
  2. METHOTREXATE [Concomitant]
  3. PREDNISONE TAB [Concomitant]

REACTIONS (2)
  - PAIN IN EXTREMITY [None]
  - PERONEAL NERVE PALSY [None]
